FAERS Safety Report 8022812-8 (Version None)
Quarter: 2012Q1

REPORT INFORMATION
  Report Type: 
  Country: None (occurrence: None)
  Receive Date: 20120104
  Receipt Date: 20111230
  Transmission Date: 20120608
  Serious: Yes (Death, Hospitalization, Disabling, Other)
  Sender: FDA-Public Use
  Company Number: US-MERCK-1110USA00594

PATIENT
  Age: 80 Year
  Sex: Male

DRUGS (1)
  1. FOSAMAX [Suspect]
     Indication: BONE DENSITY DECREASED
     Route: 048
     Dates: start: 20050101, end: 20100101

REACTIONS (19)
  - RASH [None]
  - FEMUR FRACTURE [None]
  - TONSILLAR DISORDER [None]
  - DEMENTIA ALZHEIMER'S TYPE [None]
  - COLONIC POLYP [None]
  - OSTEOPOROSIS [None]
  - BLOOD PRESSURE INCREASED [None]
  - ESSENTIAL TREMOR [None]
  - BENIGN PROSTATIC HYPERPLASIA [None]
  - PNEUMONIA ASPIRATION [None]
  - CONSTIPATION [None]
  - GOITRE [None]
  - FATIGUE [None]
  - HYPERCHOLESTEROLAEMIA [None]
  - URINARY INCONTINENCE [None]
  - OEDEMA PERIPHERAL [None]
  - ATRIAL TACHYCARDIA [None]
  - RESPIRATORY FAILURE [None]
  - ADVERSE DRUG REACTION [None]
